FAERS Safety Report 7475917-4 (Version None)
Quarter: 2011Q2

REPORT INFORMATION
  Report Type: 
  Country: None (occurrence: None)
  Receive Date: 20110512
  Receipt Date: 20110505
  Transmission Date: 20111010
  Serious: Yes (Hospitalization, Disabling)
  Sender: FDA-Public Use
  Company Number: PHHY2011US39033

PATIENT
  Age: 42 Year
  Sex: Female

DRUGS (3)
  1. GILENYA [Suspect]
     Dosage: 0.5 MG, QD
     Route: 048
     Dates: start: 20110420
  2. GILENYA [Suspect]
     Dosage: 0.5 MG, QD
     Route: 048
     Dates: end: 20110412
  3. DILANTIN [Concomitant]
     Dosage: 300 MG, QD

REACTIONS (4)
  - GASTROENTERITIS VIRAL [None]
  - PYREXIA [None]
  - DIARRHOEA [None]
  - PARAPARESIS [None]
